FAERS Safety Report 7012167-X (Version None)
Quarter: 2010Q3

REPORT INFORMATION
  Report Type: 
  Country: None (occurrence: None)
  Receive Date: 20100924
  Receipt Date: 20100913
  Transmission Date: 20110219
  Serious: Yes (Hospitalization, Other)
  Sender: FDA-Public Use
  Company Number: US-JNJFOC-20100706381

PATIENT
  Sex: Female
  Weight: 72.12 kg

DRUGS (2)
  1. REMICADE [Suspect]
     Indication: CROHN'S DISEASE
     Dosage: FIRST DOSE
     Route: 042
  2. REMICADE [Suspect]
     Dosage: ONE DOSE ADMINISTERED 12 YEARS PRIOR TO EVENT
     Route: 042

REACTIONS (2)
  - POLYARTHRITIS [None]
  - TYPE III IMMUNE COMPLEX MEDIATED REACTION [None]
